FAERS Safety Report 20549224 (Version 1)
Quarter: 2022Q1

REPORT INFORMATION
  Report Type: Spontaneous
  Country: US (occurrence: US)
  Receive Date: 20220303
  Receipt Date: 20220303
  Transmission Date: 20220423
  Serious: No
  Sender: FDA-Public Use
  Company Number: US-ALLERGAN-2125341US

PATIENT
  Age: 63 Year
  Sex: Female
  Weight: 51.247 kg

DRUGS (5)
  1. RESTASIS [Suspect]
     Active Substance: CYCLOSPORINE
     Indication: Lacrimation decreased
     Dosage: 4 GTT, BID
     Route: 047
     Dates: start: 2021
  2. LIPITOR [Concomitant]
     Active Substance: ATORVASTATIN CALCIUM
     Indication: Blood cholesterol increased
     Dosage: 20 MG, QD, STARTED 10 YEARS AGO
  3. VITAMIN D [Concomitant]
     Active Substance: VITAMIN D NOS
     Dosage: 800 MG, QD
  4. Fish oil (from Cosco) [Concomitant]
     Dosage: UNK, BID
  5. ARTIFICIAL TEARS [Concomitant]
     Active Substance: GLYCERIN\HYPROMELLOSES\POLYETHYLENE GLYCOL 400
     Indication: Dry eye

REACTIONS (3)
  - Incorrect dose administered [Unknown]
  - Eye irritation [Not Recovered/Not Resolved]
  - Vision blurred [Not Recovered/Not Resolved]

NARRATIVE: CASE EVENT DATE: 20210518
